FAERS Safety Report 14278952 (Version 2)
Quarter: 2017Q4

REPORT INFORMATION
  Report Type: Spontaneous
  Country: FR (occurrence: FR)
  Receive Date: 20171212
  Receipt Date: 20171218
  Transmission Date: 20180321
  Serious: Yes (Hospitalization, Other)
  Sender: FDA-Public Use
  Company Number: FR-SA-2017SA243354

PATIENT
  Age: 47 Year
  Sex: Female

DRUGS (6)
  1. AUBAGIO [Suspect]
     Active Substance: TERIFLUNOMIDE
     Indication: MULTIPLE SCLEROSIS
     Route: 048
     Dates: start: 20171124
  2. AUBAGIO [Suspect]
     Active Substance: TERIFLUNOMIDE
     Indication: MULTIPLE SCLEROSIS
     Route: 048
     Dates: start: 20160522, end: 201711
  3. ATARAX [Concomitant]
     Active Substance: HYDROXYZINE HYDROCHLORIDE
     Route: 065
  4. ZOLPIDEM [Concomitant]
     Active Substance: ZOLPIDEM\ZOLPIDEM TARTRATE
     Route: 065
  5. GABAPENTIN. [Concomitant]
     Active Substance: GABAPENTIN
     Dosage: 600MG AT 9H30 AM AND 300 MG AT 2H30 PM
     Route: 065
  6. ATENOLOL. [Concomitant]
     Active Substance: ATENOLOL

REACTIONS (19)
  - C-reactive protein increased [Recovered/Resolved]
  - Rales [Recovered/Resolved]
  - PCO2 decreased [Recovered/Resolved]
  - Lung disorder [Recovered/Resolved]
  - Pneumonia [Recovered/Resolved]
  - General physical health deterioration [Recovered/Resolved]
  - Livedo reticularis [Recovered/Resolved]
  - Pyrexia [Recovered/Resolved]
  - Pulmonary mass [Unknown]
  - Chills [Recovered/Resolved]
  - Hepatocellular injury [Unknown]
  - Cholestasis [Unknown]
  - Asthenia [Recovered/Resolved]
  - Anaemia [Unknown]
  - Blood bicarbonate increased [Unknown]
  - Immunosuppression [Unknown]
  - Blood creatinine increased [Unknown]
  - Blood pressure decreased [Unknown]
  - Oxygen saturation decreased [Recovered/Resolved]
